FAERS Safety Report 6302731-5 (Version None)
Quarter: 2009Q3

REPORT INFORMATION
  Report Type: 
  Country: None (occurrence: None)
  Receive Date: 20090810
  Receipt Date: 20090804
  Transmission Date: 20100115
  Serious: Yes (Other)
  Sender: FDA-Public Use
  Company Number: JP-AVENTIS-200912082JP

PATIENT
  Age: 79 Year
  Sex: Female

DRUGS (3)
  1. TAXOTERE [Suspect]
     Route: 041
  2. CISPLATIN [Suspect]
  3. UNKNOWN DRUG [Concomitant]

REACTIONS (1)
  - INAPPROPRIATE ANTIDIURETIC HORMONE SECRETION [None]
